FAERS Safety Report 10365958 (Version 2)
Quarter: 2014Q3

REPORT INFORMATION
  Report Type: Spontaneous
  Country: FI (occurrence: FI)
  Receive Date: 20140806
  Receipt Date: 20140806
  Transmission Date: 20150326
  Serious: Yes (Other)
  Sender: FDA-Public Use
  Company Number: PHHY2014FI093290

PATIENT
  Sex: Male

DRUGS (2)
  1. SANDIMMUN NEORAL / OL [Suspect]
     Active Substance: CYCLOSPORINE
     Indication: TRANSPLANT REJECTION
     Dosage: 250 MG, 25 MG CAPSULE 2 TIMES A DAY AND 50 MG CAPSULE 4 TIMES A DAY
     Route: 048
  2. CORTISONE [Suspect]
     Active Substance: CORTISONE\HYDROCORTISONE
     Indication: TRANSPLANT REJECTION
     Dosage: UNK

REACTIONS (1)
  - Glaucoma [Unknown]
